FAERS Safety Report 16468076 (Version 1)
Quarter: 2019Q2

REPORT INFORMATION
  Report Type: Spontaneous
  Country: US (occurrence: US)
  Receive Date: 20190624
  Receipt Date: 20190624
  Transmission Date: 20190711
  Serious: Yes (Other)
  Sender: FDA-Public Use
  Company Number: US-SUN PHARMACEUTICAL INDUSTRIES LTD-2019R1-201269

PATIENT
  Age: 9 Year
  Sex: Female

DRUGS (3)
  1. 4-PHENYLBUTYRATE [Interacting]
     Active Substance: PHENYLBUTYRIC ACID
     Indication: PROGRESSIVE FAMILIAL INTRAHEPATIC CHOLESTASIS
     Dosage: 500 MG/KG/D, DAILY(DOSES OF 4PB)
     Route: 065
  2. MARALIXIBAT. [Concomitant]
     Active Substance: MARALIXIBAT
     Indication: PROGRESSIVE FAMILIAL INTRAHEPATIC CHOLESTASIS
     Dosage: 1 ML IN MORNING
     Route: 065
  3. OXCARBAZEPINE. [Suspect]
     Active Substance: OXCARBAZEPINE
     Indication: PROGRESSIVE FAMILIAL INTRAHEPATIC CHOLESTASIS
     Dosage: 5 MG/KG/D, DAILY
     Route: 065

REACTIONS (1)
  - Drug interaction [Unknown]
